FAERS Safety Report 6750395-9 (Version None)
Quarter: 2010Q2

REPORT INFORMATION
  Report Type: 
  Country: None (occurrence: None)
  Receive Date: 20100601
  Receipt Date: 20100528
  Transmission Date: 20101027
  Serious: Yes (Hospitalization)
  Sender: FDA-Public Use
  Company Number: US-ALLERGAN-1006990US

PATIENT
  Age: 47 Year
  Sex: Female

DRUGS (2)
  1. BOTOX COSMETIC [Suspect]
     Indication: SKIN WRINKLING
     Dosage: 16 UNITS, SINGLE
     Dates: start: 20100526, end: 20100526
  2. ZOVIRAX [Concomitant]
     Indication: BLISTER

REACTIONS (3)
  - DIZZINESS [None]
  - SPEECH DISORDER [None]
  - TEMPERATURE REGULATION DISORDER [None]
